FAERS Safety Report 4339349-X (Version None)
Quarter: 2004Q2

REPORT INFORMATION
  Report Type: 
  Country: None (occurrence: None)
  Receive Date: 20040414
  Receipt Date: 20040414
  Transmission Date: 20050107
  Serious: No
  Sender: FDA-Public Use
  Company Number: None

PATIENT
  Age: 56 Year
  Sex: Male
  Weight: 85.2762 kg

DRUGS (4)
  1. CAPZASIN-HP CREAM 0.1% CHATTEM, INC [Suspect]
     Indication: TENDONITIS
     Dosage: 1/2 INCH BID TOPICAL
     Route: 061
     Dates: start: 20040110, end: 20040308
  2. MULTI-VITAMINS [Concomitant]
  3. ASPIRIN [Concomitant]
  4. FISH OIL CAPSULES [Concomitant]

REACTIONS (2)
  - ALOPECIA [None]
  - PIGMENTATION DISORDER [None]
